FAERS Safety Report 8023752-0 (Version None)
Quarter: 2012Q1

REPORT INFORMATION
  Report Type: 
  Country: None (occurrence: None)
  Receive Date: 20120105
  Receipt Date: 20111230
  Transmission Date: 20120608
  Serious: Yes (Hospitalization, Disabling, Other)
  Sender: FDA-Public Use
  Company Number: FR-ELI_LILLY_AND_COMPANY-FR201112007754

PATIENT
  Sex: Female

DRUGS (7)
  1. LEPTICUR [Concomitant]
     Indication: PARKINSONISM
     Dosage: 10 MG, UNK
     Route: 048
  2. HEPT-A-MYL [Concomitant]
     Indication: ORTHOSTATIC HYPOTENSION
     Route: 048
  3. IMOVANE [Concomitant]
     Indication: INSOMNIA
     Route: 048
  4. PIPERACILLIN AND TAZOBACTAM [Concomitant]
     Indication: BACTERIAL INFECTION
     Dosage: UNK
     Route: 048
     Dates: end: 20110101
  5. ZYPREXA [Suspect]
     Indication: SCHIZOPHRENIA, PARANOID TYPE
     Dosage: 10 MG, QD
     Route: 048
  6. TRIMEPRAZINE TARTRATE [Concomitant]
     Indication: INSOMNIA
     Dosage: UNK
     Route: 048
     Dates: end: 20110101
  7. CIPROFLOXACIN [Concomitant]
     Indication: BACTERIAL INFECTION
     Dosage: UNK
     Route: 048
     Dates: end: 20110101

REACTIONS (4)
  - ABASIA [None]
  - PARKINSON'S DISEASE [None]
  - EXTRAPYRAMIDAL DISORDER [None]
  - PNEUMONIA ASPIRATION [None]
